FAERS Safety Report 7942949-9 (Version None)
Quarter: 2011Q4

REPORT INFORMATION
  Report Type: 
  Country: None (occurrence: None)
  Receive Date: 20111128
  Receipt Date: 20111104
  Transmission Date: 20120403
  Serious: Yes (Congenital Anomaly)
  Sender: FDA-Public Use
  Company Number: BR-MERCK-1111BRA00053B1

PATIENT
  Sex: Female
  Weight: 4 kg

DRUGS (4)
  1. CITALOPRAM HYDROBROMIDE [Concomitant]
     Route: 065
     Dates: start: 20110101, end: 20111018
  2. COSOPT [Suspect]
     Route: 065
     Dates: start: 20110101, end: 20111018
  3. COSOPT [Suspect]
     Route: 065
     Dates: start: 20111018
  4. CITALOPRAM HYDROBROMIDE [Concomitant]
     Route: 065
     Dates: start: 20110101

REACTIONS (5)
  - DIARRHOEA [None]
  - EXPOSURE DURING BREAST FEEDING [None]
  - HAEMANGIOMA [None]
  - ABDOMINAL PAIN [None]
  - FOETAL EXPOSURE TIMING UNSPECIFIED [None]
